FAERS Safety Report 7522439-8 (Version None)
Quarter: 2011Q2

REPORT INFORMATION
  Report Type: 
  Country: None (occurrence: None)
  Receive Date: 20110603
  Receipt Date: 20110601
  Transmission Date: 20111010
  Serious: Yes (Death)
  Sender: FDA-Public Use
  Company Number: CZ-ABBOTT-11P-217-0729450-00

PATIENT
  Age: 76 Year
  Sex: Male
  Weight: 88.3 kg

DRUGS (6)
  1. ZEMPLAR [Suspect]
     Indication: HYPERPARATHYROIDISM SECONDARY
     Route: 048
     Dates: start: 20110506, end: 20110531
  2. GLURENORM [Concomitant]
     Indication: TYPE 2 DIABETES MELLITUS
  3. CORDARONE [Concomitant]
     Indication: ARRHYTHMIA
  4. CORDARONE [Concomitant]
     Indication: ISCHAEMIA
     Route: 048
     Dates: start: 20100428, end: 20110531
  5. ANOPYRIN [Concomitant]
     Indication: MYOCARDIAL ISCHAEMIA
     Route: 048
     Dates: start: 20100430, end: 20110531
  6. FUROSEMIDE [Concomitant]
     Indication: FLUID RETENTION
     Route: 048
     Dates: start: 20110504, end: 20110531

REACTIONS (1)
  - DEATH [None]
